FAERS Safety Report 15531183 (Version 1)
Quarter: 2018Q4

REPORT INFORMATION
  Report Type: Spontaneous
  Country: FR (occurrence: FR)
  Receive Date: 20181019
  Receipt Date: 20181019
  Transmission Date: 20190205
  Serious: Yes (Hospitalization)
  Sender: FDA-Public Use
  Company Number: FR-TEVA-2018-FR-965859

PATIENT
  Age: 29 Year
  Sex: Male

DRUGS (2)
  1. VALIUM [Concomitant]
     Active Substance: DIAZEPAM
     Route: 048
     Dates: start: 2018
  2. TRAMADOL BASE [Suspect]
     Active Substance: TRAMADOL
     Route: 048
     Dates: start: 201808

REACTIONS (3)
  - Intentional product misuse [Recovering/Resolving]
  - Drug dependence [Recovering/Resolving]
  - Psychomotor hyperactivity [Recovered/Resolved]

NARRATIVE: CASE EVENT DATE: 201808
